FAERS Safety Report 16442965 (Version 1)
Quarter: 2019Q2

REPORT INFORMATION
  Report Type: Spontaneous
  Country: FR (occurrence: FR)
  Receive Date: 20190617
  Receipt Date: 20190617
  Transmission Date: 20190711
  Serious: Yes (Other)
  Sender: FDA-Public Use
  Company Number: PHHY2019FR134234

PATIENT
  Sex: Male

DRUGS (8)
  1. SULFARLEM [Suspect]
     Active Substance: ANETHOLTRITHION
     Indication: PRODUCT ADMINISTRATION ERROR
     Route: 048
  2. OLANZAPINE. [Suspect]
     Active Substance: OLANZAPINE
     Indication: PRODUCT ADMINISTRATION ERROR
     Route: 048
  3. DEPAKINE [Suspect]
     Active Substance: VALPROATE SODIUM
     Indication: PRODUCT ADMINISTRATION ERROR
     Route: 048
  4. SPASFON (PHLOROGLUCINOL, TRIMETHYLPHLOROGLUCINOL) [Suspect]
     Active Substance: PHLOROGLUCINOL\1,3,5-TRIMETHOXYBENZENE
     Indication: PRODUCT ADMINISTRATION ERROR
     Route: 048
  5. AMIODARONE [Suspect]
     Active Substance: AMIODARONE
     Indication: PRODUCT ADMINISTRATION ERROR
     Route: 048
  6. XANAX [Suspect]
     Active Substance: ALPRAZOLAM
     Indication: PRODUCT ADMINISTRATION ERROR
     Route: 048
  7. ARTANE [Suspect]
     Active Substance: TRIHEXYPHENIDYL HYDROCHLORIDE
     Indication: PRODUCT ADMINISTRATION ERROR
     Route: 048
  8. TERCIAN [Suspect]
     Active Substance: CYAMEMAZINE
     Indication: PRODUCT ADMINISTRATION ERROR
     Route: 048

REACTIONS (6)
  - Hypotension [Recovered/Resolved]
  - Haemodynamic instability [Recovered/Resolved]
  - Tachycardia [Recovered/Resolved]
  - Product administration error [Recovered/Resolved]
  - Wrong patient received product [Recovered/Resolved]
  - Circumstance or information capable of leading to medication error [Recovered/Resolved]

NARRATIVE: CASE EVENT DATE: 20190510
